FAERS Safety Report 19449707 (Version 1)
Quarter: 2021Q2

REPORT INFORMATION
  Report Type: Spontaneous
  Country: US (occurrence: US)
  Receive Date: 20210622
  Receipt Date: 20210622
  Transmission Date: 20210717
  Serious: Yes (Other)
  Sender: FDA-Public Use
  Company Number: US-TAKEDA-2021TJP042260

PATIENT
  Age: 15 Year
  Sex: Male
  Weight: 95.25 kg

DRUGS (7)
  1. PREVACID [Suspect]
     Active Substance: LANSOPRAZOLE
     Indication: GASTROOESOPHAGEAL REFLUX DISEASE
     Dosage: 30 MG, 2X/DAY
     Route: 048
     Dates: start: 2006
  2. FLUTICASONE. [Concomitant]
     Active Substance: FLUTICASONE
     Indication: DRUG HYPERSENSITIVITY
  3. FLUTICASONE. [Concomitant]
     Active Substance: FLUTICASONE
     Indication: ASTHMA
     Dosage: 1 DF, 2X/DAY (1 SPRAY IN EACH NOSTRIL )
     Dates: start: 2017
  4. TOZINAMERAN. [Concomitant]
     Active Substance: TOZINAMERAN
     Dosage: 2ND DOSE, SINGLE
     Dates: start: 20210603, end: 20210603
  5. BUDESONIDE. [Concomitant]
     Active Substance: BUDESONIDE
     Indication: SINUS DISORDER
     Dosage: NEBULIZER SOLUTION 0.5 MG IN AMPULE AND PUTS IN WITH SALINE IN A SINUS RINSE TWICE A DAY   , 2X/DAY
     Dates: start: 2013
  6. TOZINAMERAN. [Concomitant]
     Active Substance: TOZINAMERAN
     Indication: COVID-19 IMMUNISATION
     Dosage: 1ST DOSE, SINGLE
     Dates: start: 20210513, end: 20210513
  7. ADVAIR HFA [Concomitant]
     Active Substance: FLUTICASONE PROPIONATE\SALMETEROL XINAFOATE
     Indication: ASTHMA
     Dosage: 2 DF (2 PUFFS ), 2X/DAY
     Dates: start: 2013

REACTIONS (4)
  - Off label use [Unknown]
  - Idiopathic intracranial hypertension [Unknown]
  - Autoimmune thyroiditis [Unknown]
  - Adrenal insufficiency [Unknown]

NARRATIVE: CASE EVENT DATE: 2015
